FAERS Safety Report 10874628 (Version 1)
Quarter: 2015Q1

REPORT INFORMATION
  Report Type: Spontaneous
  Country: US (occurrence: US)
  Receive Date: 20150227
  Receipt Date: 20150227
  Transmission Date: 20150721
  Serious: No
  Sender: FDA-Public Use
  Company Number: US-GLAXOSMITHKLINE-US2015014164

PATIENT
  Sex: Female

DRUGS (9)
  1. XARELTO [Concomitant]
     Active Substance: RIVAROXABAN
  2. ADVAIR DISKUS [Suspect]
     Active Substance: FLUTICASONE PROPIONATE\SALMETEROL XINAFOATE
     Indication: ASTHMA
     Dosage: 250/50
     Route: 055
  3. CALTRATE [Concomitant]
     Active Substance: CALCIUM CARBONATE
  4. SUCRALFATE. [Concomitant]
     Active Substance: SUCRALFATE
  5. OMEPRAZOLE. [Concomitant]
     Active Substance: OMEPRAZOLE
  6. FLUOXETINE [Concomitant]
     Active Substance: FLUOXETINE\FLUOXETINE HYDROCHLORIDE
  7. LYRICA [Concomitant]
     Active Substance: PREGABALIN
  8. RANITIDINE [Concomitant]
     Active Substance: RANITIDINE\RANITIDINE HYDROCHLORIDE
  9. PREDNISONE. [Concomitant]
     Active Substance: PREDNISONE

REACTIONS (14)
  - Muscle spasms [Not Recovered/Not Resolved]
  - Dysphonia [Not Recovered/Not Resolved]
  - Back pain [Recovered/Resolved]
  - Ill-defined disorder [Unknown]
  - Memory impairment [Unknown]
  - Headache [Recovered/Resolved]
  - Productive cough [Recovered/Resolved]
  - Nervous system disorder [Unknown]
  - Hallucination, visual [Unknown]
  - Intentional product use issue [Unknown]
  - Pain [Unknown]
  - Drug hypersensitivity [Unknown]
  - Disorientation [Unknown]
  - Treatment noncompliance [Unknown]
